FAERS Safety Report 18695709 (Version 1)
Quarter: 2021Q1

REPORT INFORMATION
  Report Type: Spontaneous
  Country: US (occurrence: US)
  Receive Date: 20210104
  Receipt Date: 20210104
  Transmission Date: 20210419
  Serious: No
  Sender: FDA-Public Use
  Company Number: US-PFIZER INC-2020520745

PATIENT
  Sex: Female

DRUGS (1)
  1. LYRICA [Suspect]
     Active Substance: PREGABALIN
     Indication: MOTION SICKNESS
     Dosage: 75 MG

REACTIONS (3)
  - Off label use [Unknown]
  - Speech disorder [Unknown]
  - Hyperventilation [Unknown]
